FAERS Safety Report 4527258-2 (Version None)
Quarter: 2004Q4

REPORT INFORMATION
  Report Type: 
  Country: None (occurrence: None)
  Receive Date: 20041130
  Receipt Date: 20040803
  Transmission Date: 20050328
  Serious: No
  Sender: FDA-Public Use
  Company Number: FABR-10723

PATIENT
  Age: 41 Year
  Sex: Male
  Weight: 103 kg

DRUGS (6)
  1. FABRAZYME [Suspect]
     Indication: FABRY'S DISEASE
     Dosage: 103 MG Q2WKS IV
     Route: 042
     Dates: start: 20040521
  2. ATENOLOL [Concomitant]
  3. WARFARIN SODIUM [Concomitant]
  4. LOVASTATIN [Concomitant]
  5. LEVOTHYROXINE SODIUM [Concomitant]
  6. PRINIVIL [Concomitant]

REACTIONS (3)
  - ATRIAL FIBRILLATION [None]
  - BLOOD PRESSURE DECREASED [None]
  - CHILLS [None]
